FAERS Safety Report 10573112 (Version 1)
Quarter: 2014Q4

REPORT INFORMATION
  Report Type: Spontaneous
  Country: US (occurrence: None)
  Receive Date: 20141107
  Receipt Date: 20141107
  Transmission Date: 20150529
  Serious: Yes (Hospitalization, Other)
  Sender: FDA-Public Use
  Company Number: None

PATIENT
  Sex: Female
  Weight: 58.06 kg

DRUGS (2)
  1. OGEN [Suspect]
     Active Substance: ESTROPIPATE
     Indication: AMNESIA
     Route: 048
     Dates: start: 2010, end: 2012
  2. OGEN [Suspect]
     Active Substance: ESTROPIPATE
     Indication: BLOOD OESTROGEN DECREASED
     Route: 048
     Dates: start: 2010, end: 2012

REACTIONS (9)
  - Haemorrhage [None]
  - Blood pressure increased [None]
  - Skin disorder [None]
  - Product substitution issue [None]
  - Memory impairment [None]
  - Feeling abnormal [None]
  - Product quality issue [None]
  - Weight increased [None]
  - Alopecia [None]
